FAERS Safety Report 18413947 (Version 2)
Quarter: 2020Q4

REPORT INFORMATION
  Report Type: Report from Study
  Country: None (occurrence: UY)
  Receive Date: 20201022
  Receipt Date: 20201110
  Transmission Date: 20210114
  Serious: Yes (Hospitalization)
  Sender: FDA-Public Use
  Company Number: UY-ABBVIE-20K-168-3616225-00

PATIENT
  Age: 41 Year
  Sex: Female

DRUGS (1)
  1. HUMIRA [Suspect]
     Active Substance: ADALIMUMAB
     Indication: PSORIASIS
     Route: 058
     Dates: start: 20151020

REACTIONS (6)
  - Eye disorder [Recovered/Resolved]
  - Eye disorder [Unknown]
  - Rash [Recovered/Resolved]
  - Inflammation [Recovered/Resolved]
  - Inflammation [Unknown]
  - Drug eruption [Unknown]

NARRATIVE: CASE EVENT DATE: 202009
